FAERS Safety Report 11930874 (Version 1)
Quarter: 2016Q1

REPORT INFORMATION
  Report Type: Spontaneous
  Country: IN (occurrence: IN)
  Receive Date: 20160120
  Receipt Date: 20160120
  Transmission Date: 20160526
  Serious: Yes (Other)
  Sender: FDA-Public Use
  Company Number: PHHY2016IN005692

PATIENT
  Age: 15 Year
  Sex: Male

DRUGS (2)
  1. CARBAMAZEPINE. [Suspect]
     Active Substance: CARBAMAZEPINE
     Indication: IMPULSIVE BEHAVIOUR
     Dosage: 200 MG, QD
     Route: 065
  2. CARBAMAZEPINE. [Suspect]
     Active Substance: CARBAMAZEPINE
     Dosage: 400 MG, QD
     Route: 065

REACTIONS (6)
  - Rash pruritic [Recovered/Resolved]
  - Eye pain [Recovering/Resolving]
  - Optic neuropathy [Recovering/Resolving]
  - Colour blindness [Recovering/Resolving]
  - Drug hypersensitivity [Recovered/Resolved]
  - Visual acuity reduced [Recovering/Resolving]
